FAERS Safety Report 8124651-6 (Version None)
Quarter: 2012Q1

REPORT INFORMATION
  Report Type: 
  Country: None (occurrence: None)
  Receive Date: 20120209
  Receipt Date: 20120209
  Transmission Date: 20120608
  Serious: Yes (Life-Threatening, Other)
  Sender: FDA-Public Use
  Company Number: None

PATIENT
  Age: 29 Year
  Sex: Female
  Weight: 61.234 kg

DRUGS (1)
  1. MIRENA [Suspect]

REACTIONS (8)
  - HEADACHE [None]
  - HAEMORRHAGE [None]
  - ANXIETY [None]
  - DIZZINESS [None]
  - NERVOUSNESS [None]
  - INSOMNIA [None]
  - MENOPAUSE [None]
  - POSTPARTUM DEPRESSION [None]
